FAERS Safety Report 12437958 (Version 1)
Quarter: 2016Q2

REPORT INFORMATION
  Report Type: Spontaneous
  Country: US (occurrence: US)
  Receive Date: 20160606
  Receipt Date: 20160606
  Transmission Date: 20160815
  Serious: No
  Sender: FDA-Public Use
  Company Number: US-ACTAVIS-2016-06216

PATIENT
  Sex: Female

DRUGS (1)
  1. CLOPIDOGREL BISULFATE (ATLLC) [Suspect]
     Active Substance: CLOPIDOGREL BISULFATE
     Indication: INTRACRANIAL ANEURYSM
     Dosage: 75 MG, DAILY
     Route: 048

REACTIONS (3)
  - Blood blister [Recovered/Resolved]
  - Epistaxis [Recovered/Resolved]
  - Mouth injury [Recovered/Resolved]
